FAERS Safety Report 25211491 (Version 1)
Quarter: 2025Q2

REPORT INFORMATION
  Report Type: Spontaneous
  Country: CN (occurrence: CN)
  Receive Date: 20250418
  Receipt Date: 20250418
  Transmission Date: 20250716
  Serious: Yes (Other)
  Sender: TAKEDA
  Company Number: CN-TAKEDA-2025TUS036922

PATIENT
  Age: 69 Year
  Sex: Male
  Weight: 61.9 kg

DRUGS (3)
  1. ALBUMIN HUMAN [Suspect]
     Active Substance: ALBUMIN HUMAN
     Indication: Supplementation therapy
     Dosage: 20 GRAM, QD
     Dates: start: 20250329, end: 20250331
  2. ENOXAPARIN SODIUM [Suspect]
     Active Substance: ENOXAPARIN SODIUM
     Indication: Thrombosis prophylaxis
     Dosage: 0.4 MILLILITER, QD
     Dates: start: 20250328, end: 20250408
  3. CEFACLOR [Suspect]
     Active Substance: CEFACLOR
     Indication: Anti-infective therapy
     Dosage: 250 MILLIGRAM, TID
     Dates: start: 20250326, end: 20250405

REACTIONS (1)
  - Alanine aminotransferase increased [Recovering/Resolving]

NARRATIVE: CASE EVENT DATE: 20250331
